FAERS Safety Report 6047110-3 (Version None)
Quarter: 2009Q1

REPORT INFORMATION
  Report Type: 
  Country: None (occurrence: None)
  Receive Date: 20090122
  Receipt Date: 20090113
  Transmission Date: 20090719
  Serious: Yes (Hospitalization)
  Sender: FDA-Public Use
  Company Number: PHHY2009DE01344

PATIENT
  Age: 84 Year
  Sex: Male

DRUGS (1)
  1. VOLTAREN [Suspect]
     Indication: ANALGESIA
     Dosage: 50 MG, ONCE/SINGLE
     Route: 048
     Dates: start: 20080922, end: 20080922

REACTIONS (3)
  - HYPERHIDROSIS [None]
  - PRURITUS [None]
  - SENSE OF OPPRESSION [None]
